FAERS Safety Report 8832419 (Version 1)
Quarter: 2012Q4

REPORT INFORMATION
  Report Type: Spontaneous
  Country: IT (occurrence: None)
  Receive Date: 20121005
  Receipt Date: 20121005
  Transmission Date: 20130627
  Serious: Yes (Other)
  Sender: FDA-Public Use
  Company Number: FK201202852

PATIENT
  Age: 11 Month
  Sex: Female

DRUGS (1)
  1. CYANOCOBALAMIN [Suspect]
     Indication: VITAMIN B12 DEFICIENCY
     Route: 030

REACTIONS (10)
  - Dyskinesia [None]
  - Tremor [None]
  - Myoclonus [None]
  - Protrusion tongue [None]
  - Muscle twitching [None]
  - Lethargy [None]
  - Status epilepticus [None]
  - Encephalopathy [None]
  - Cerebral atrophy [None]
  - Dysmyelination [None]
